FAERS Safety Report 5005974-6 (Version None)
Quarter: 2006Q2

REPORT INFORMATION
  Report Type: 
  Country: None (occurrence: None)
  Receive Date: 20060517
  Receipt Date: 20060517
  Transmission Date: 20061013
  Serious: Yes (Hospitalization)
  Sender: FDA-Public Use
  Company Number: None

PATIENT
  Sex: Male

DRUGS (6)
  1. UNASYN [Suspect]
     Indication: UROSEPSIS
     Dosage: 3 GM Q 8 HR IV
     Route: 042
     Dates: start: 20060210, end: 20060210
  2. BUPROPION [Concomitant]
  3. EZETIMIBE [Concomitant]
  4. FLUVASTATIN [Concomitant]
  5. INSULIN [Concomitant]
  6. TOPIRAMATE [Concomitant]

REACTIONS (1)
  - RESPIRATORY DISTRESS [None]
